FAERS Safety Report 6915810-6 (Version None)
Quarter: 2010Q3

REPORT INFORMATION
  Report Type: 
  Country: None (occurrence: None)
  Receive Date: 20100810
  Receipt Date: 20100421
  Transmission Date: 20110219
  Serious: No
  Sender: FDA-Public Use
  Company Number: A0856115A

PATIENT
  Age: 29 Year
  Sex: Female

DRUGS (8)
  1. PAXIL [Suspect]
     Dosage: 20MG PER DAY
     Route: 048
     Dates: start: 20100301, end: 20100302
  2. MICROGESTIN 1.5/30 [Concomitant]
  3. NORVASC [Concomitant]
  4. NEXIUM [Concomitant]
  5. TRANSENE [Concomitant]
  6. BENADRYL [Concomitant]
  7. ACETAMINOPHEN [Concomitant]
  8. PARAFON FORTE [Concomitant]

REACTIONS (5)
  - ANXIETY [None]
  - FEELING JITTERY [None]
  - HEART RATE INCREASED [None]
  - TREMOR [None]
  - YAWNING [None]
